FAERS Safety Report 25337458 (Version 1)
Quarter: 2025Q2

REPORT INFORMATION
  Report Type: Spontaneous
  Country: US (occurrence: US)
  Receive Date: 20250520
  Receipt Date: 20250520
  Transmission Date: 20250716
  Serious: No
  Sender: BAUSCH AND LOMB
  Company Number: US-BAUSCH-BL-2025-006257

PATIENT
  Age: 52 Year
  Sex: Male
  Weight: 83.99 kg

DRUGS (2)
  1. XIFAXAN [Suspect]
     Active Substance: RIFAXIMIN
     Indication: Irritable bowel syndrome
     Dosage: ALREADY TAKEN 6 COURSES
     Route: 048
     Dates: start: 2021
  2. XIFAXAN [Suspect]
     Active Substance: RIFAXIMIN
     Indication: Gastrointestinal microorganism overgrowth

REACTIONS (7)
  - Irritable bowel syndrome [Unknown]
  - Gastrointestinal microorganism overgrowth [Unknown]
  - Disease recurrence [Unknown]
  - Red blood cell count decreased [Unknown]
  - White blood cell count decreased [Unknown]
  - Product prescribing issue [Unknown]
  - Product use issue [Unknown]
